FAERS Safety Report 7723452-8 (Version None)
Quarter: 2011Q3

REPORT INFORMATION
  Report Type: 
  Country: None (occurrence: None)
  Receive Date: 20110901
  Receipt Date: 20110830
  Transmission Date: 20111222
  Serious: No
  Sender: FDA-Public Use
  Company Number: US-PFIZER INC-2011175092

PATIENT
  Sex: Female
  Weight: 68.027 kg

DRUGS (7)
  1. PAXIL [Concomitant]
     Indication: DEPRESSION
     Dosage: UNK
  2. CHANTIX [Suspect]
     Indication: SMOKING CESSATION THERAPY
     Dosage: 0.5 MG, 1X/DAY
     Route: 048
     Dates: start: 20110728, end: 20110101
  3. TRANXENE [Concomitant]
     Indication: ANXIETY
     Dosage: UNK
  4. REQUIP [Concomitant]
     Indication: RESTLESS LEGS SYNDROME
     Dosage: UNK
  5. CHANTIX [Suspect]
     Dosage: 0.5 MG, 2X/DAY
     Dates: start: 20110101
  6. SOMA [Concomitant]
     Indication: FIBROMYALGIA
     Dosage: UNK
  7. VICODIN [Concomitant]
     Indication: FIBROMYALGIA
     Dosage: UNK

REACTIONS (2)
  - NERVOUSNESS [None]
  - RASH PRURITIC [None]
